FAERS Safety Report 8428317 (Version 2)
Quarter: 2013Q2

REPORT INFORMATION
  Report Type: Spontaneous
  Country: CA (occurrence: CA)
  Receive Date: 20120227
  Receipt Date: 20130407
  Transmission Date: 20140414
  Serious: Yes (Hospitalization, Disabling, Other)
  Sender: FDA-Public Use
  Company Number: CA-JNJFOC-20120209102

PATIENT
  Age: 60 Year
  Sex: Female

DRUGS (10)
  1. REMICADE [Suspect]
     Indication: CROHN^S DISEASE
     Dosage: DOSE 4000 UNITS??APPROXIMATE TOTAL NUMBER OF INFUSIONS WERE 20
     Route: 042
  2. REMICADE [Suspect]
     Indication: CROHN^S DISEASE
     Dosage: 4000 UNITS
     Route: 042
     Dates: start: 201202
  3. XALATAN [Concomitant]
     Route: 065
  4. SOLUCORTEF [Concomitant]
     Indication: PREMEDICATION
     Route: 065
  5. BENADRYL [Concomitant]
     Indication: PREMEDICATION
     Route: 065
  6. COUMADIN [Concomitant]
     Indication: PRODUCT USED FOR UNKNOWN INDICATION
     Route: 065
  7. IMURAN [Concomitant]
     Indication: PRODUCT USED FOR UNKNOWN INDICATION
     Route: 065
  8. PREDNISONE [Concomitant]
     Indication: PRODUCT USED FOR UNKNOWN INDICATION
     Route: 065
  9. COMBIGAN [Concomitant]
     Dosage: 1 DROP 2 TIMES DAILY
     Route: 065
  10. WARFARIN [Concomitant]
     Dosage: ON WEDNESDAY 5 MG
     Route: 065

REACTIONS (6)
  - Infusion related reaction [Recovered/Resolved]
  - Dyspnoea [Recovered/Resolved]
  - Cerebrovascular accident [Recovered/Resolved]
  - Therapeutic response decreased [Unknown]
  - Feeling abnormal [Recovered/Resolved]
  - Dysphagia [Recovered/Resolved]
